FAERS Safety Report 22250536 (Version 1)
Quarter: 2023Q2

REPORT INFORMATION
  Report Type: Spontaneous
  Country: RU (occurrence: None)
  Receive Date: 20230425
  Receipt Date: 20230425
  Transmission Date: 20230722
  Serious: Yes (Other)
  Sender: FDA-Public Use
  Company Number: RU-Merck Healthcare KGaA-9397520

PATIENT
  Sex: Female

DRUGS (4)
  1. EUTHYROX [Suspect]
     Active Substance: LEVOTHYROXINE SODIUM
     Indication: Post procedural hypothyroidism
     Dosage: BEFORE PREGNANCY
     Dates: start: 2015
  2. EUTHYROX [Suspect]
     Active Substance: LEVOTHYROXINE SODIUM
     Dosage: DURING PREGNANCY
     Dates: start: 202205, end: 202301
  3. EUTHYROX [Suspect]
     Active Substance: LEVOTHYROXINE SODIUM
     Dosage: AFTER PREGNANCY
     Dates: start: 202302
  4. EUTHYROX [Suspect]
     Active Substance: LEVOTHYROXINE SODIUM
     Dosage: AFTER GIVING BIRTH (MID FEB)

REACTIONS (7)
  - Lens disorder [Unknown]
  - Blood thyroid stimulating hormone increased [Unknown]
  - General physical health deterioration [Unknown]
  - Weight loss poor [Unknown]
  - Product packaging issue [Unknown]
  - Live birth [Recovered/Resolved]
  - Maternal exposure during pregnancy [Recovered/Resolved]
